FAERS Safety Report 6389619-9 (Version None)
Quarter: 2009Q4

REPORT INFORMATION
  Report Type: 
  Country: None (occurrence: None)
  Receive Date: 20091006
  Receipt Date: 20090922
  Transmission Date: 20100525
  Serious: Yes (Hospitalization)
  Sender: FDA-Public Use
  Company Number: PHEH2009US11587

PATIENT
  Sex: Female

DRUGS (1)
  1. EXJADE [Suspect]
     Indication: CHRONIC LYMPHOCYTIC LEUKAEMIA
     Dosage: 1250 MG DAILY
     Route: 048

REACTIONS (5)
  - ASTHENIA [None]
  - GAIT DISTURBANCE [None]
  - PYREXIA [None]
  - THROMBOSIS [None]
  - VENA CAVA FILTER INSERTION [None]
